FAERS Safety Report 15048191 (Version 1)
Quarter: 2018Q2

REPORT INFORMATION
  Report Type: Report from Study
  Country: ES (occurrence: ES)
  Receive Date: 20180622
  Receipt Date: 20180622
  Transmission Date: 20180711
  Serious: Yes (Life-Threatening, Hospitalization, Other)
  Sender: FDA-Public Use
  Company Number: ES-TEVA-2018-ES-911996

PATIENT
  Age: 48 Year
  Sex: Female

DRUGS (5)
  1. CICLOFOSFAMIDA (120A) [Interacting]
     Active Substance: CYCLOPHOSPHAMIDE
     Indication: BREAST CANCER
     Route: 042
     Dates: start: 20100730, end: 20101005
  2. PACLITAXEL (2698A) [Interacting]
     Active Substance: PACLITAXEL
     Indication: BREAST CANCER
     Route: 042
     Dates: start: 20101118, end: 20110107
  3. TAMOXIFENO CITRATO (733CI) [Concomitant]
     Indication: BREAST CANCER
     Dosage: 20 MILLIGRAM DAILY;
     Route: 048
     Dates: start: 20110304, end: 201403
  4. DOXORUBICIN [Suspect]
     Active Substance: DOXORUBICIN
     Indication: BREAST CANCER
     Route: 042
     Dates: start: 20100730, end: 20101005
  5. DOCETAXEL (7394A) [Concomitant]
     Indication: BREAST CANCER
     Route: 042
     Dates: start: 20101026, end: 20101026

REACTIONS (2)
  - Drug interaction [Unknown]
  - Congestive cardiomyopathy [Not Recovered/Not Resolved]

NARRATIVE: CASE EVENT DATE: 201710
